FAERS Safety Report 21830598 (Version 1)
Quarter: 2023Q1

REPORT INFORMATION
  Report Type: Spontaneous
  Country: US (occurrence: None)
  Receive Date: 20230106
  Receipt Date: 20230106
  Transmission Date: 20230418
  Serious: Yes (Hospitalization)
  Sender: FDA-Public Use
  Company Number: None

PATIENT
  Sex: Female
  Weight: 25.7 kg

DRUGS (5)
  1. LEUCOVORIN CALCIUM [Suspect]
     Active Substance: LEUCOVORIN CALCIUM
  2. MERCAPTOPURINE [Concomitant]
     Active Substance: MERCAPTOPURINE
  3. METHOTREXATE [Concomitant]
     Active Substance: METHOTREXATE
  4. PREDNISOLONE [Concomitant]
     Active Substance: PREDNISOLONE
  5. VINCRISTINE SULFATE [Concomitant]
     Active Substance: VINCRISTINE SULFATE

REACTIONS (5)
  - Stomatitis [None]
  - Oral mucosal erythema [None]
  - Hypophagia [None]
  - Febrile neutropenia [None]
  - Adenovirus test positive [None]

NARRATIVE: CASE EVENT DATE: 20221230
